FAERS Safety Report 8224545-1 (Version None)
Quarter: 2012Q1

REPORT INFORMATION
  Report Type: 
  Country: None (occurrence: None)
  Receive Date: 20120321
  Receipt Date: 20120312
  Transmission Date: 20120608
  Serious: Yes (Hospitalization, Other)
  Sender: FDA-Public Use
  Company Number: FR-PFIZER INC-2012071234

PATIENT
  Age: 80 Year
  Sex: Male

DRUGS (3)
  1. LASIX [Concomitant]
     Dosage: UNK
  2. RAMIPRIL [Suspect]
     Indication: CARDIOMYOPATHY
     Dosage: 3X/DAY
     Route: 048
     Dates: start: 20030101
  3. BISOPROLOL FUMARATE [Concomitant]
     Dosage: UNK

REACTIONS (1)
  - ECZEMA [None]
